FAERS Safety Report 7016101-8 (Version None)
Quarter: 2010Q3

REPORT INFORMATION
  Report Type: 
  Country: None (occurrence: None)
  Receive Date: 20100927
  Receipt Date: 20100914
  Transmission Date: 20110219
  Serious: Yes (Other)
  Sender: FDA-Public Use
  Company Number: US-WATSON-2010-12571

PATIENT
  Age: 47 Year
  Sex: Female

DRUGS (1)
  1. BETAMETHASONE SODIUM PHOSPHATE [Suspect]
     Indication: BACK PAIN
     Dosage: 2 ML, UNK
     Route: 008

REACTIONS (1)
  - MENORRHAGIA [None]
